FAERS Safety Report 8385030-X (Version None)
Quarter: 2012Q2

REPORT INFORMATION
  Report Type: 
  Country: None (occurrence: None)
  Receive Date: 20120524
  Receipt Date: 20120521
  Transmission Date: 20120825
  Serious: Yes (Hospitalization)
  Sender: FDA-Public Use
  Company Number: AU-AMGEN-AUSCT2012006761

PATIENT
  Age: 35 Year
  Sex: Female

DRUGS (8)
  1. NEXIUM [Concomitant]
     Dosage: 40 MG, QD
     Route: 048
     Dates: start: 20101222
  2. GABAPENTIN [Concomitant]
     Dosage: 300 MG, UNK
     Route: 048
     Dates: start: 20101101
  3. ALLEGRON [Concomitant]
     Dosage: 10 MG, UNK
     Route: 048
     Dates: start: 20111005
  4. NAPROXEN [Concomitant]
     Dosage: 250 MG, QD
     Dates: start: 20110321
  5. DENOSUMAB [Suspect]
     Indication: BONE GIANT CELL TUMOUR
     Dosage: 120 MG, QMO
     Route: 058
     Dates: start: 20090812
  6. OXYCODONE HCL [Concomitant]
     Dosage: 30 MG, BID
     Route: 048
     Dates: start: 20101029
  7. PRAMIN [Concomitant]
     Dosage: 10 MG, PRN
     Route: 048
     Dates: start: 20110611
  8. LEVLEN ED [Concomitant]
     Dosage: UNK UNK, QD
     Route: 048
     Dates: start: 20101201

REACTIONS (1)
  - BACK PAIN [None]
